FAERS Safety Report 16019919 (Version 4)
Quarter: 2019Q3

REPORT INFORMATION
  Report Type: Spontaneous
  Country: US (occurrence: US)
  Receive Date: 20190228
  Receipt Date: 20190819
  Transmission Date: 20191004
  Serious: Yes (Hospitalization)
  Sender: FDA-Public Use
  Company Number: US-ACTELION-A-NJ2019-186969

PATIENT
  Age: 47 Year
  Sex: Male
  Weight: 78.91 kg

DRUGS (2)
  1. VELETRI [Suspect]
     Active Substance: EPOPROSTENOL
     Dosage: 27 NG/KG, PER MIN
     Route: 042
  2. VELETRI [Suspect]
     Active Substance: EPOPROSTENOL
     Indication: PULMONARY ARTERIAL HYPERTENSION
     Dosage: 34 NG/KG, PER MIN
     Route: 042

REACTIONS (3)
  - Pulmonary arterial pressure abnormal [Recovering/Resolving]
  - Dyspnoea exertional [Not Recovered/Not Resolved]
  - Liver transplant [Recovering/Resolving]

NARRATIVE: CASE EVENT DATE: 201902
